FAERS Safety Report 7046224-9 (Version None)
Quarter: 2010Q4

REPORT INFORMATION
  Report Type: 
  Country: None (occurrence: None)
  Receive Date: 20101014
  Receipt Date: 20101011
  Transmission Date: 20110411
  Serious: Yes (Hospitalization)
  Sender: FDA-Public Use
  Company Number: A0805928A

PATIENT
  Sex: Male
  Weight: 100 kg

DRUGS (8)
  1. ELTROMBOPAG [Suspect]
     Indication: THROMBOCYTOPENIA
     Dosage: 50MG PER DAY
     Route: 048
     Dates: start: 20080410, end: 20090319
  2. PEGASYS [Suspect]
     Dosage: 180MCG WEEKLY
     Route: 058
     Dates: start: 20080410, end: 20090312
  3. COPEGUS [Suspect]
     Route: 048
     Dates: start: 20080410, end: 20090319
  4. ELTROMBOPAG [Suspect]
     Dosage: 25MG PER DAY
     Route: 048
     Dates: start: 20080318, end: 20080409
  5. METFORMIN [Concomitant]
     Indication: DIABETES MELLITUS
  6. FUROSEMIDE [Concomitant]
     Indication: PORTAL HYPERTENSION
  7. OMEPRAZOLE [Concomitant]
     Indication: GASTRITIS
  8. PRAVASTATIN [Concomitant]
     Indication: BLOOD CHOLESTEROL INCREASED

REACTIONS (2)
  - HEPATIC FUNCTION ABNORMAL [None]
  - HEPATIC NEOPLASM MALIGNANT [None]
